FAERS Safety Report 14573810 (Version 2)
Quarter: 2018Q3

REPORT INFORMATION
  Report Type: Spontaneous
  Country: PL (occurrence: PL)
  Receive Date: 20180226
  Receipt Date: 20180925
  Transmission Date: 20181010
  Serious: Yes (Hospitalization)
  Sender: FDA-Public Use
  Company Number: PL-PFIZER INC-2018077688

PATIENT
  Age: 30 Year
  Sex: Female

DRUGS (7)
  1. VALPROIC ACID. [Suspect]
     Active Substance: VALPROIC ACID
     Dosage: UNK (SYRUP)
     Route: 048
  2. LAMOTRIGINE. [Suspect]
     Active Substance: LAMOTRIGINE
     Indication: JUVENILE MYOCLONIC EPILEPSY
     Dosage: UNK (ALL DRUGS WERE USED AT MAXIMUM ACCEPTABLE DOSES)
  3. VALPROIC ACID. [Suspect]
     Active Substance: VALPROIC ACID
     Dosage: 2000 MG, DAILY (ENTERIC?COATED FAST?RELEASING TABLETS)
     Route: 048
  4. VALPROIC ACID. [Suspect]
     Active Substance: VALPROIC ACID
     Dosage: UNK (INTRAVENOUS INJECTION)
     Route: 017
  5. VALPROIC ACID. [Suspect]
     Active Substance: VALPROIC ACID
     Dosage: 3000 MG, DAILY(ENTERIC?COATED TABLETS THERAPY WAS MAINTAINED)
  6. LEVETIRACETAM. [Suspect]
     Active Substance: LEVETIRACETAM
     Indication: JUVENILE MYOCLONIC EPILEPSY
     Dosage: UNK (ALL DRUGS WERE USED AT MAXIMUM ACCEPTABLE DOSES)
  7. VALPROIC ACID. [Suspect]
     Active Substance: VALPROIC ACID
     Indication: JUVENILE MYOCLONIC EPILEPSY
     Dosage: 2000 MG, DAILY(PROLONGED?RELEASE TABLETS)
     Route: 048

REACTIONS (3)
  - Drug ineffective [Unknown]
  - Malabsorption [Unknown]
  - Seizure [Unknown]
